FAERS Safety Report 25605182 (Version 1)
Quarter: 2025Q3

REPORT INFORMATION
  Report Type: Spontaneous
  Country: US (occurrence: None)
  Receive Date: 20250724
  Receipt Date: 20250724
  Transmission Date: 20251021
  Serious: Yes (Hospitalization)
  Sender: FDA-CTU
  Company Number: None

PATIENT
  Sex: Female

DRUGS (2)
  1. OPSUMIT [Suspect]
     Active Substance: MACITENTAN
     Indication: Pulmonary arterial hypertension
     Dosage: FREQUENCY : DAILY;?
     Route: 048
     Dates: start: 20250711
  2. TYVASO [Suspect]
     Active Substance: TREPROSTINIL

REACTIONS (4)
  - Diarrhoea [None]
  - Nausea [None]
  - Fatigue [None]
  - Oxygen saturation decreased [None]
